FAERS Safety Report 24770888 (Version 1)
Quarter: 2024Q4

REPORT INFORMATION
  Report Type: Spontaneous
  Country: US (occurrence: None)
  Receive Date: 20241223
  Receipt Date: 20241223
  Transmission Date: 20250115
  Serious: Yes (Disabling, Other)
  Sender: Public
  Company Number: None

PATIENT
  Age: 20 Year
  Sex: Male
  Weight: 103.5 kg

DRUGS (1)
  1. SERTRALINE [Suspect]
     Active Substance: SERTRALINE HYDROCHLORIDE
     Indication: Depression
     Dosage: FREQUENCY : AT BEDTIME;?
     Route: 048

REACTIONS (7)
  - Insomnia [None]
  - Emotional disorder [None]
  - Brain fog [None]
  - Anhedonia [None]
  - Loss of libido [None]
  - Visual impairment [None]
  - Tinnitus [None]

NARRATIVE: CASE EVENT DATE: 20220611
